FAERS Safety Report 11053764 (Version 3)
Quarter: 2015Q2

REPORT INFORMATION
  Report Type: Spontaneous
  Country: DE (occurrence: DE)
  Receive Date: 20150421
  Receipt Date: 20150527
  Transmission Date: 20150821
  Serious: Yes (Other)
  Sender: FDA-Public Use
  Company Number: PHHY2015DE046251

PATIENT
  Sex: Female

DRUGS (3)
  1. GILENYA [Suspect]
     Active Substance: FINGOLIMOD HYDROCHLORIDE
     Indication: MULTIPLE SCLEROSIS
     Dosage: 0.5 MG, QD
     Route: 048
     Dates: start: 2012, end: 2014
  2. TREVILOR RETARD [Interacting]
     Active Substance: VENLAFAXINE HYDROCHLORIDE
     Indication: PRODUCT USED FOR UNKNOWN INDICATION
     Dosage: UNK UKN, UNK
     Route: 065
     Dates: end: 2014
  3. GILENYA [Interacting]
     Active Substance: FINGOLIMOD HYDROCHLORIDE
     Dosage: 0.5 MG, QD
     Route: 048
     Dates: start: 201501

REACTIONS (13)
  - Swelling face [Recovering/Resolving]
  - Gait disturbance [Not Recovered/Not Resolved]
  - Drug withdrawal syndrome [Unknown]
  - Migraine [Recovered/Resolved]
  - Food intolerance [Recovered/Resolved]
  - Gastric disorder [Recovered/Resolved]
  - Multiple sclerosis relapse [Recovering/Resolving]
  - Drug interaction [Recovering/Resolving]
  - Gastrointestinal disorder [Recovered/Resolved]
  - Muscle spasms [Unknown]
  - Constipation [Recovered/Resolved]
  - Apathy [Unknown]
  - Muscle spasticity [Recovering/Resolving]

NARRATIVE: CASE EVENT DATE: 2014
